FAERS Safety Report 9729288 (Version 1)
Quarter: 2013Q4

REPORT INFORMATION
  Report Type: Spontaneous
  Country: US (occurrence: US)
  Receive Date: 20131204
  Receipt Date: 20131204
  Transmission Date: 20140711
  Serious: Yes (Other)
  Sender: FDA-Public Use
  Company Number: US-BAYER-2013-147422

PATIENT
  Age: 20 Year
  Sex: Female
  Weight: 61.68 kg

DRUGS (4)
  1. YAZ [Suspect]
  2. ADVIL [Concomitant]
     Dosage: UNK, AS NEEDED
  3. COMPAZINE [Concomitant]
  4. BENADRYL [Concomitant]

REACTIONS (2)
  - Brain stem infarction [Recovering/Resolving]
  - Cerebrovascular accident [None]
